FAERS Safety Report 23358372 (Version 1)
Quarter: 2024Q1

REPORT INFORMATION
  Report Type: Spontaneous
  Country: DE (occurrence: DE)
  Receive Date: 20240102
  Receipt Date: 20240102
  Transmission Date: 20240409
  Serious: Yes (Disabling)
  Sender: FDA-Public Use
  Company Number: DE-KOHLPHARMA-02604

PATIENT
  Age: 80 Year
  Sex: Female
  Weight: 67 kg

DRUGS (3)
  1. CYKLOKAPRON [Suspect]
     Active Substance: TRANEXAMIC ACID
     Indication: Cataract operation
     Dosage: 3 TABLETS
     Route: 048
     Dates: start: 20230605, end: 20230606
  2. CYKLOKAPRON [Suspect]
     Active Substance: TRANEXAMIC ACID
     Dosage: 3 TABLETS
     Route: 048
     Dates: start: 20230809, end: 20230810
  3. Calcium sandoz d osteo [Concomitant]
     Indication: Osteoporosis
     Dosage: UNK UNK, QD
     Route: 048

REACTIONS (2)
  - Retinal disorder [Not Recovered/Not Resolved]
  - Visual impairment [Not Recovered/Not Resolved]
